FAERS Safety Report 11720056 (Version 3)
Quarter: 2015Q4

REPORT INFORMATION
  Report Type: Report from Study
  Country: GB (occurrence: GB)
  Receive Date: 20151110
  Receipt Date: 20151221
  Transmission Date: 20160304
  Serious: Yes (Other)
  Sender: FDA-Public Use
  Company Number: GB-ROCHE-1656691

PATIENT
  Sex: Female
  Weight: 66 kg

DRUGS (2)
  1. RITUXIMAB [Suspect]
     Active Substance: RITUXIMAB
     Indication: RHEUMATOID ARTHRITIS
     Dosage: RECEIVED MOST RECENT DOSE ON 31/DEC/2013
     Route: 065
  2. METHOTREXATE [Concomitant]
     Active Substance: METHOTREXATE
     Dosage: LAST DOSE PRIOR TO EVENT: 31/DEC/2013
     Route: 065

REACTIONS (1)
  - Bowen^s disease [Unknown]
